FAERS Safety Report 17370901 (Version 1)
Quarter: 2020Q1

REPORT INFORMATION
  Report Type: Spontaneous
  Country: US (occurrence: US)
  Receive Date: 20200121
  Receipt Date: 20200121
  Transmission Date: 20200409
  Serious: Yes (Death)
  Sender: FDA-Public Use
  Company Number: None

PATIENT
  Age: 76 Year
  Sex: Male

DRUGS (1)
  1. OCTREOTIDE SDV 100MCG/ML [Suspect]
     Active Substance: OCTREOTIDE ACETATE
     Route: 058
     Dates: start: 201910, end: 202001

REACTIONS (1)
  - Death [None]

NARRATIVE: CASE EVENT DATE: 20200109
